FAERS Safety Report 6037753-5 (Version None)
Quarter: 2009Q1

REPORT INFORMATION
  Report Type: 
  Country: None (occurrence: None)
  Receive Date: 20090114
  Receipt Date: 20090105
  Transmission Date: 20090719
  Serious: Yes (Death)
  Sender: FDA-Public Use
  Company Number: US-MERCK-0901USA00969

PATIENT
  Age: 71 Year
  Sex: Male

DRUGS (6)
  1. QUININE [Suspect]
     Route: 048
  2. GLYBURIDE [Suspect]
     Route: 048
  3. ROSIGLITAZONE MALEATE [Suspect]
     Route: 048
  4. IRON (UNSPECIFIED) AND VITAMINS (UNSPECIFIED) [Suspect]
     Route: 048
  5. FUROSEMIDE [Suspect]
     Route: 048
  6. HYDRODIURIL [Suspect]
     Route: 048

REACTIONS (3)
  - COMPLETED SUICIDE [None]
  - MULTIPLE DRUG OVERDOSE INTENTIONAL [None]
  - OVERDOSE [None]
